FAERS Safety Report 23100019 (Version 1)
Quarter: 2023Q4

REPORT INFORMATION
  Report Type: Spontaneous
  Country: US (occurrence: None)
  Receive Date: 20231023
  Receipt Date: 20231023
  Transmission Date: 20240110
  Serious: No
  Sender: FDA-Public Use
  Company Number: None

PATIENT
  Age: 57 Year
  Sex: Female
  Weight: 74.25 kg

DRUGS (5)
  1. VTAMA [Suspect]
     Active Substance: TAPINAROF
     Indication: Eczema
     Dosage: OTHER STRENGTH : CREAM;?OTHER QUANTITY : 1 CREAM;?FREQUENCY : TWICE A DAY;?
     Route: 061
     Dates: start: 20231019, end: 20231020
  2. VTAMA [Suspect]
     Active Substance: TAPINAROF
     Indication: Psoriasis
  3. WELLBUTRIN [Concomitant]
     Active Substance: BUPROPION HYDROCHLORIDE
  4. VITAMINS [Concomitant]
     Active Substance: VITAMINS
  5. FISH OIL [Concomitant]
     Active Substance: FISH OIL

REACTIONS (5)
  - Rash [None]
  - Rash [None]
  - Rash [None]
  - Rash pruritic [None]
  - Discomfort [None]

NARRATIVE: CASE EVENT DATE: 20231020
